FAERS Safety Report 4557986-4 (Version None)
Quarter: 2005Q1

REPORT INFORMATION
  Report Type: 
  Country: None (occurrence: None)
  Receive Date: 20050121
  Receipt Date: 20040322
  Transmission Date: 20050727
  Serious: No
  Sender: FDA-Public Use
  Company Number: US-BRISTOL-MYERS SQUIBB COMPANY-12564829

PATIENT
  Age: 38 Year
  Sex: Female

DRUGS (5)
  1. SERZONE [Suspect]
     Route: 048
     Dates: start: 20000608
  2. TRAZODONE HCL [Concomitant]
  3. XANAX [Concomitant]
  4. NEURONTIN [Concomitant]
  5. KLONOPIN [Concomitant]

REACTIONS (5)
  - GALACTORRHOEA [None]
  - HALLUCINATION [None]
  - HEPATIC STEATOSIS [None]
  - SUICIDAL IDEATION [None]
  - URINARY TRACT INFECTION [None]
